FAERS Safety Report 6016582-2 (Version None)
Quarter: 2008Q4

REPORT INFORMATION
  Report Type: 
  Country: None (occurrence: None)
  Receive Date: 20081222
  Receipt Date: 20081211
  Transmission Date: 20090506
  Serious: Yes (Other)
  Sender: FDA-Public Use
  Company Number: PHHY2008JP32030

PATIENT
  Age: 60 Year
  Sex: Male

DRUGS (3)
  1. DIOVAN [Suspect]
     Dosage: 80 MG, BID
     Route: 048
  2. VALTREX [Suspect]
     Dosage: UNK
     Route: 048
     Dates: start: 20081206
  3. CRESTOR [Concomitant]

REACTIONS (2)
  - HERPES ZOSTER [None]
  - VENTRICULAR ARRHYTHMIA [None]
